FAERS Safety Report 5252058-8 (Version None)
Quarter: 2007Q1

REPORT INFORMATION
  Report Type: 
  Country: None (occurrence: None)
  Receive Date: 20070227
  Receipt Date: 20070220
  Transmission Date: 20070707
  Serious: Yes (Death, Hospitalization)
  Sender: FDA-Public Use
  Company Number: 234328

PATIENT
  Age: 69 Year
  Sex: Male

DRUGS (14)
  1. AVASTIN [Suspect]
     Indication: COLORECTAL CANCER
     Dosage: 548 MG Q3W INTRAVENOUS
     Route: 042
     Dates: start: 20061109
  2. CAPECITABINE (CAPECITABINE) [Suspect]
     Indication: COLORECTAL CANCER
     Dosage: 3600 MG BID ORAL
     Route: 048
     Dates: start: 20061109
  3. OXALIPLATIN [Suspect]
     Indication: COLORECTAL CANCER
     Dosage: 240 MG Q3W INTRAVENOUS
     Route: 042
     Dates: start: 20061109
  4. OMEPRAZOLE [Concomitant]
  5. MEDICATION (UNK INGREDIENT) [Concomitant]
  6. COMPONENT(S) NOT KNOWN [Concomitant]
  7. ACETAMINOPHEN [Concomitant]
  8. OXAZEPAM [Concomitant]
  9. AUGMENTIN '250' [Concomitant]
  10. POTASSIUM CHLORIDE [Concomitant]
  11. GENTAMICIN [Concomitant]
  12. XELODA [Concomitant]
  13. FRAXIPARINE (NADROPARIN CALCIUM) [Concomitant]
  14. MAGNESIUM SULFATE [Concomitant]

REACTIONS (5)
  - AORTIC ANEURYSM RUPTURE [None]
  - CONSTIPATION [None]
  - HAEMOGLOBIN DECREASED [None]
  - HYPOTENSION [None]
  - SHOCK [None]
